FAERS Safety Report 24227704 (Version 1)
Quarter: 2024Q3

REPORT INFORMATION
  Report Type: Spontaneous
  Country: NZ (occurrence: NZ)
  Receive Date: 20240820
  Receipt Date: 20240820
  Transmission Date: 20241017
  Serious: Yes (Hospitalization)
  Sender: CSL BEHRING
  Company Number: NZ-BEH-2024177122

PATIENT
  Sex: Female
  Weight: 74 kg

DRUGS (10)
  1. PRIVIGEN [Suspect]
     Active Substance: HUMAN IMMUNOGLOBULIN G
     Indication: Plasmapheresis
     Dosage: 72
     Route: 042
     Dates: start: 20240807, end: 20240807
  2. PRIVIGEN [Suspect]
     Active Substance: HUMAN IMMUNOGLOBULIN G
     Dosage: UNK
     Route: 042
     Dates: start: 20240807
  3. PRIVIGEN [Suspect]
     Active Substance: HUMAN IMMUNOGLOBULIN G
     Dosage: UNK
     Route: 042
     Dates: start: 20240807
  4. HUMAN IMMUNOGLOBULIN G [Suspect]
     Active Substance: HUMAN IMMUNOGLOBULIN G
     Dosage: UNK
     Route: 042
     Dates: start: 20240806
  5. ALBUMEX 4 [Concomitant]
     Dosage: UNK
     Route: 065
     Dates: start: 20240802
  6. ALBUMEX 4 [Concomitant]
     Dosage: UNK
     Route: 065
     Dates: start: 20240804
  7. ALBUMEX 4 [Concomitant]
     Dosage: UNK
     Route: 065
     Dates: start: 20240806
  8. PANADOL [Concomitant]
     Active Substance: ACETAMINOPHEN
  9. CODEINE [Concomitant]
     Active Substance: CODEINE
  10. ONDANSETRON [Concomitant]
     Active Substance: ONDANSETRON

REACTIONS (8)
  - Chest pain [Recovering/Resolving]
  - Abdominal pain [Recovering/Resolving]
  - Oropharyngeal pain [Recovering/Resolving]
  - Nausea [Recovering/Resolving]
  - Vomiting [Recovering/Resolving]
  - Abdominal pain [Recovering/Resolving]
  - Paraesthesia [Recovering/Resolving]
  - Pruritus [Recovering/Resolving]
